FAERS Safety Report 7933374-5 (Version None)
Quarter: 2011Q4

REPORT INFORMATION
  Report Type: 
  Country: None (occurrence: None)
  Receive Date: 20111122
  Receipt Date: 20111122
  Transmission Date: 20120403
  Serious: No
  Sender: FDA-Public Use
  Company Number: None

PATIENT
  Sex: Male
  Weight: 57.606 kg

DRUGS (1)
  1. TAMSULOSIN HCL [Suspect]
     Indication: BENIGN PROSTATIC HYPERPLASIA
     Dosage: 0.4MG
     Route: 048
     Dates: start: 20110901, end: 20111011

REACTIONS (11)
  - CHEST PAIN [None]
  - PARAESTHESIA [None]
  - CONSTIPATION [None]
  - THIRST [None]
  - PRODUCT SUBSTITUTION ISSUE [None]
  - POLLAKIURIA [None]
  - PAIN IN EXTREMITY [None]
  - DRY MOUTH [None]
  - DEHYDRATION [None]
  - HYPOAESTHESIA [None]
  - NASAL DRYNESS [None]
